FAERS Safety Report 4938389-7 (Version None)
Quarter: 2006Q1

REPORT INFORMATION
  Report Type: 
  Country: None (occurrence: None)
  Receive Date: 20060308
  Receipt Date: 20060308
  Transmission Date: 20060701
  Serious: Yes (Other)
  Sender: FDA-Public Use
  Company Number: None

PATIENT
  Sex: Female
  Weight: 59.4212 kg

DRUGS (3)
  1. DURAGESIC-50 [Suspect]
     Indication: INTERVERTEBRAL DISC DEGENERATION
     Dosage: 50 MCG/HR PATCH
     Dates: start: 20050415
  2. DURAGESIC-50 [Suspect]
     Indication: ROTATOR CUFF SYNDROME
     Dosage: 50 MCG/HR PATCH
     Dates: start: 20050415
  3. MSIR [Concomitant]

REACTIONS (5)
  - DRUG INEFFECTIVE [None]
  - INADEQUATE ANALGESIA [None]
  - LETHARGY [None]
  - OVERDOSE [None]
  - THERAPEUTIC RESPONSE UNEXPECTED WITH DRUG SUBSTITUTION [None]
